FAERS Safety Report 6443898-8 (Version None)
Quarter: 2009Q4

REPORT INFORMATION
  Report Type: 
  Country: None (occurrence: None)
  Receive Date: 20091113
  Receipt Date: 20091005
  Transmission Date: 20100525
  Serious: Yes (Other)
  Sender: FDA-Public Use
  Company Number: 1000009912

PATIENT
  Age: 80 Year
  Sex: Male

DRUGS (1)
  1. MEMANTINE HCL [Suspect]
     Indication: MEMORY IMPAIRMENT
     Dosage: ORAL
     Route: 048
     Dates: start: 20090701

REACTIONS (2)
  - PRURITUS [None]
  - TOXIC SKIN ERUPTION [None]
